FAERS Safety Report 9752468 (Version 4)
Quarter: 2013Q4

REPORT INFORMATION
  Report Type: Spontaneous
  Country: JP (occurrence: JP)
  Receive Date: 20131213
  Receipt Date: 20131230
  Transmission Date: 20140711
  Serious: Yes (Hospitalization, Disabling)
  Sender: FDA-Public Use
  Company Number: JP-BAYER-2013-141400

PATIENT
  Age: 86 Year
  Sex: Male
  Weight: 44 kg

DRUGS (7)
  1. NEXAVAR [Suspect]
     Indication: HEPATOCELLULAR CARCINOMA
     Dosage: 200 MG, QD
     Route: 048
     Dates: start: 20131008
  2. HIRUDOID [Concomitant]
     Dosage: UNK
     Route: 061
  3. MIYA BM [Concomitant]
     Dosage: DAILY DOSE 3 DF
     Route: 048
  4. URSO [Concomitant]
     Dosage: DAILY DOSE 600 MG
     Route: 048
  5. ADJUST-A [Concomitant]
     Dosage: DAILY DOSE 80 MG
     Route: 048
  6. AMLODIN [Concomitant]
     Dosage: DAILY DOSE 2.5 MG
     Route: 048
  7. LIVACT [Concomitant]
     Dosage: DAILY DOSE 12.45 G
     Route: 048

REACTIONS (2)
  - Gallbladder perforation [Recovered/Resolved]
  - White blood cell count decreased [Not Recovered/Not Resolved]
